FAERS Safety Report 16578330 (Version 2)
Quarter: 2019Q3

REPORT INFORMATION
  Report Type: Spontaneous
  Country: US (occurrence: US)
  Receive Date: 20190716
  Receipt Date: 20190726
  Transmission Date: 20191004
  Serious: Yes (Other)
  Sender: FDA-Public Use
  Company Number: US-NEPHRON STERILE COMPOUNDING CENTER-2070862

PATIENT
  Age: 51 Year
  Sex: Male
  Weight: 123 kg

DRUGS (5)
  1. PROPOFOL. [Concomitant]
     Active Substance: PROPOFOL
     Route: 040
  2. FENTANYL. [Concomitant]
     Active Substance: FENTANYL
     Route: 040
  3. ROCURONIUM [Concomitant]
     Active Substance: ROCURONIUM BROMIDE
     Route: 040
  4. SUCCINYLCHOLINE CHLORIDE. [Suspect]
     Active Substance: SUCCINYLCHOLINE CHLORIDE
     Indication: ENDOSCOPIC RETROGRADE CHOLANGIOPANCREATOGRAPHY
     Route: 040
     Dates: start: 20190710, end: 20190710
  5. LIDOCAINE. [Concomitant]
     Active Substance: LIDOCAINE
     Route: 042

REACTIONS (1)
  - Drug ineffective [Recovered/Resolved]

NARRATIVE: CASE EVENT DATE: 20190710
